FAERS Safety Report 9837207 (Version 3)
Quarter: 2014Q1

REPORT INFORMATION
  Report Type: Spontaneous
  Country: CA (occurrence: CA)
  Receive Date: 20140123
  Receipt Date: 20140213
  Transmission Date: 20141002
  Serious: Yes (Hospitalization, Other)
  Sender: FDA-Public Use
  Company Number: PHHY2014CA005580

PATIENT
  Sex: Male

DRUGS (1)
  1. GLEEVEC [Suspect]
     Indication: NEOPLASM MALIGNANT
     Dosage: UNK UKN, UNK

REACTIONS (4)
  - Renal failure [Unknown]
  - Autoimmune thyroiditis [Unknown]
  - Rhabdomyolysis [Unknown]
  - Drug ineffective [Unknown]
